FAERS Safety Report 10175520 (Version 1)
Quarter: 2014Q2

REPORT INFORMATION
  Report Type: Spontaneous
  Country: TW (occurrence: TW)
  Receive Date: 20140516
  Receipt Date: 20140516
  Transmission Date: 20141212
  Serious: Yes (Death, Hospitalization)
  Sender: FDA-Public Use
  Company Number: PHHY2014TW055702

PATIENT
  Age: 80 Year
  Sex: Male

DRUGS (5)
  1. 5-FLUOROURACIL [Suspect]
     Indication: COLON CANCER METASTATIC
     Dates: start: 20120605, end: 20120607
  2. FOLINIC ACID [Suspect]
     Indication: COLON CANCER METASTATIC
     Dates: start: 20120605, end: 20120607
  3. IRINOTECAN [Suspect]
     Indication: COLON CANCER METASTATIC
     Dosage: 180 MG/M2, UNK
     Dates: start: 20120605, end: 20120607
  4. IRINOTECAN [Suspect]
     Dosage: 144 MG/M2, UNK
     Dates: start: 20120605, end: 20120607
  5. AVASTIN [Suspect]
     Indication: COLON CANCER METASTATIC
     Dosage: 5 MG/KG, UNK
     Dates: start: 20120605, end: 20120607

REACTIONS (13)
  - Tumour lysis syndrome [Fatal]
  - Carbohydrate antigen 19-9 increased [Fatal]
  - Carcinoembryonic antigen increased [Fatal]
  - Renal failure acute [Fatal]
  - Respiratory failure [Unknown]
  - Haematemesis [Unknown]
  - Melaena [Unknown]
  - Metabolic acidosis [Unknown]
  - Oxygen saturation decreased [Unknown]
  - Depressed level of consciousness [Unknown]
  - Hypotension [Unknown]
  - Nausea [Unknown]
  - Decreased appetite [Unknown]
